FAERS Safety Report 5732715-7 (Version None)
Quarter: 2008Q2

REPORT INFORMATION
  Report Type: 
  Country: None (occurrence: None)
  Receive Date: 20080509
  Receipt Date: 20080428
  Transmission Date: 20081010
  Serious: Yes (Other)
  Sender: FDA-Public Use
  Company Number: US-BAYER-200816586NA

PATIENT
  Sex: Male

DRUGS (1)
  1. TRASYLOL [Suspect]
     Indication: HEART VALVE OPERATION
     Dates: start: 20050601

REACTIONS (2)
  - PULMONARY OEDEMA [None]
  - RENAL FAILURE [None]
